FAERS Safety Report 9209633 (Version 2)
Quarter: 2013Q2

REPORT INFORMATION
  Report Type: Spontaneous
  Country: DE (occurrence: DE)
  Receive Date: 20130404
  Receipt Date: 20130416
  Transmission Date: 20140414
  Serious: No
  Sender: FDA-Public Use
  Company Number: DE-ABBOTT-13P-062-1067723-00

PATIENT
  Sex: Male

DRUGS (2)
  1. TESTOGEL [Suspect]
     Indication: FATIGUE
     Route: 062
  2. TESTOGEL [Suspect]
     Indication: HOT FLUSH

REACTIONS (2)
  - Dysphonia [Not Recovered/Not Resolved]
  - Dysphonia [Not Recovered/Not Resolved]
